FAERS Safety Report 6862445-X (Version None)
Quarter: 2010Q3

REPORT INFORMATION
  Report Type: 
  Country: None (occurrence: None)
  Receive Date: 20100721
  Receipt Date: 20100714
  Transmission Date: 20110219
  Serious: Yes (Death)
  Sender: FDA-Public Use
  Company Number: US-TEVA-241605USA

PATIENT
  Sex: Female

DRUGS (1)
  1. NOREPINEPHRINE BITARTRATE 1 MG BASE/ML [Suspect]
     Indication: PRODUCT USED FOR UNKNOWN INDICATION
     Route: 042

REACTIONS (1)
  - DEVICE MALFUNCTION [None]
